FAERS Safety Report 6919169-X (Version None)
Quarter: 2010Q3

REPORT INFORMATION
  Report Type: 
  Country: None (occurrence: None)
  Receive Date: 20100811
  Receipt Date: 20100803
  Transmission Date: 20110219
  Serious: Yes (Other)
  Sender: FDA-Public Use
  Company Number: DK-ROCHE-719030

PATIENT
  Sex: Female

DRUGS (1)
  1. ROACTEMRA [Suspect]
     Indication: PRODUCT USED FOR UNKNOWN INDICATION
     Route: 065
     Dates: start: 20100531

REACTIONS (3)
  - DIARRHOEA HAEMORRHAGIC [None]
  - TRANSAMINASES INCREASED [None]
  - URINARY TRACT INFECTION [None]
